FAERS Safety Report 5215561-2 (Version None)
Quarter: 2007Q1

REPORT INFORMATION
  Report Type: 
  Country: None (occurrence: None)
  Receive Date: 20070123
  Receipt Date: 20070108
  Transmission Date: 20070707
  Serious: Yes (Hospitalization, Other)
  Sender: FDA-Public Use
  Company Number: PHBS2006BG20146

PATIENT
  Age: 45 Year
  Sex: Female

DRUGS (2)
  1. LEPONEX [Suspect]
     Indication: SCHIZOPHRENIA, PARANOID TYPE
     Dosage: 300 MG/D
     Route: 048
     Dates: start: 19900101, end: 20061206
  2. LEPONEX [Suspect]
     Dosage: 75 MG/DAY
     Route: 048

REACTIONS (17)
  - AGGRESSION [None]
  - ALANINE AMINOTRANSFERASE INCREASED [None]
  - ANAEMIA [None]
  - ASPARTATE AMINOTRANSFERASE INCREASED [None]
  - BRONCHOPNEUMONIA [None]
  - CONDITION AGGRAVATED [None]
  - DRUG WITHDRAWAL SYNDROME [None]
  - HAEMOGLOBIN DECREASED [None]
  - HEPATITIS [None]
  - HEPATITIS TOXIC [None]
  - LIVER DISORDER [None]
  - MENTAL DISORDER [None]
  - NEGATIVISM [None]
  - SCHIZOPHRENIA, PARANOID TYPE [None]
  - STUPOR [None]
  - TRANSAMINASES INCREASED [None]
  - X-RAY ABNORMAL [None]
